FAERS Safety Report 12309984 (Version 4)
Quarter: 2016Q3

REPORT INFORMATION
  Report Type: Spontaneous
  Country: US (occurrence: US)
  Receive Date: 20160427
  Receipt Date: 20160811
  Transmission Date: 20161109
  Serious: Yes (Hospitalization)
  Sender: FDA-Public Use
  Company Number: US-BEH-2016061634

PATIENT
  Sex: Female

DRUGS (1)
  1. HIZENTRA [Suspect]
     Active Substance: HUMAN IMMUNOGLOBULIN G
     Indication: PRODUCT USED FOR UNKNOWN INDICATION

REACTIONS (14)
  - Asthenia [Unknown]
  - Kidney infection [Unknown]
  - Abdominal pain [Unknown]
  - Arthropathy [Unknown]
  - Weight increased [Unknown]
  - Pyrexia [Unknown]
  - Pleurisy [Unknown]
  - Pallor [Unknown]
  - Sinusitis [Unknown]
  - Muscular weakness [Unknown]
  - Walking aid user [Unknown]
  - Upper respiratory tract infection [Unknown]
  - Bronchitis [Unknown]
  - Abdominal distension [Unknown]

NARRATIVE: CASE EVENT DATE: 201605
